FAERS Safety Report 8435510-3 (Version None)
Quarter: 2012Q2

REPORT INFORMATION
  Report Type: 
  Country: None (occurrence: None)
  Receive Date: 20120614
  Receipt Date: 20120608
  Transmission Date: 20120825
  Serious: Yes (Hospitalization)
  Sender: FDA-Public Use
  Company Number: FR-PFIZER INC-2012137849

PATIENT
  Age: 63 Year
  Sex: Female

DRUGS (4)
  1. LYRICA [Suspect]
     Indication: ARTHRALGIA
     Dosage: 25 MG, 2X/DAY
     Route: 048
     Dates: start: 20070101, end: 20120101
  2. TEGRETOL-XR [Concomitant]
     Indication: EPILEPSY
     Dosage: 400 MG, 1X/DAY
     Route: 048
     Dates: start: 19880101
  3. ACETAMINOPHEN [Concomitant]
     Indication: ARTHRALGIA
     Dosage: UNK
     Route: 048
     Dates: start: 20100101
  4. LEVOTHYROXINE SODIUM [Concomitant]
     Indication: HYPOTHYROIDISM
     Dosage: 150 UG, 1X/DAY
     Route: 048
     Dates: start: 20060101

REACTIONS (7)
  - IRRITABILITY [None]
  - JOINT DISLOCATION [None]
  - UPPER LIMB FRACTURE [None]
  - SLEEP DISORDER [None]
  - FALL [None]
  - BALANCE DISORDER [None]
  - IMPULSIVE BEHAVIOUR [None]
